FAERS Safety Report 4283774-2 (Version None)
Quarter: 2004Q1

REPORT INFORMATION
  Report Type: 
  Country: None (occurrence: None)
  Receive Date: 20040121
  Receipt Date: 20030316
  Transmission Date: 20041129
  Serious: Yes (Hospitalization)
  Sender: FDA-Public Use
  Company Number: A03200300594

PATIENT
  Age: 71 Year
  Sex: Female

DRUGS (1)
  1. PLAVIX [Suspect]
     Indication: ISCHAEMIC STROKE
     Dosage: ORAL
     Route: 048
     Dates: start: 20021113, end: 20030201

REACTIONS (1)
  - HAEMORRHAGE [None]
